FAERS Safety Report 9281772 (Version 1)
Quarter: 2013Q2

REPORT INFORMATION
  Report Type: Spontaneous
  Country: DE (occurrence: DE)
  Receive Date: 20130510
  Receipt Date: 20130510
  Transmission Date: 20140414
  Serious: Yes (Other)
  Sender: FDA-Public Use
  Company Number: DE-B.I. PHARMACEUTICALS,INC./RIDGEFIELD-2013-DE-01268DE

PATIENT
  Age: 78 Year
  Sex: Male

DRUGS (7)
  1. PRADAXA [Suspect]
     Indication: ATRIAL FIBRILLATION
     Dosage: 220 MG
     Dates: start: 201209, end: 20130430
  2. ASS 100 [Concomitant]
  3. CONCOR [Concomitant]
  4. DELIX [Concomitant]
  5. RAMIPRIL [Concomitant]
  6. SIMVASTATIN [Concomitant]
  7. HCT BETA [Concomitant]

REACTIONS (1)
  - Prostatic specific antigen increased [Not Recovered/Not Resolved]
